FAERS Safety Report 13385340 (Version 2)
Quarter: 2017Q2

REPORT INFORMATION
  Report Type: Report from Study
  Country: US (occurrence: US)
  Receive Date: 20170330
  Receipt Date: 20170419
  Transmission Date: 20170830
  Serious: Yes (Hospitalization, Other)
  Sender: FDA-Public Use
  Company Number: PHEH2017US008786

PATIENT
  Sex: Male

DRUGS (6)
  1. MULTI VITAMIN [Concomitant]
     Active Substance: VITAMINS
     Indication: PRODUCT USED FOR UNKNOWN INDICATION
     Dosage: 1 DF, QD
     Route: 065
     Dates: start: 20170322
  2. CITALOPRAM HYDROBROMIDE. [Concomitant]
     Active Substance: CITALOPRAM HYDROBROMIDE
     Indication: PRODUCT USED FOR UNKNOWN INDICATION
     Dosage: 2 DF, QD
     Route: 048
  3. KLOR-CON M20 [Concomitant]
     Active Substance: POTASSIUM CHLORIDE
     Indication: PRODUCT USED FOR UNKNOWN INDICATION
     Dosage: 1 DF, QD
     Route: 065
     Dates: start: 20170321
  4. MELATONIN [Concomitant]
     Active Substance: MELATONIN
     Indication: PRODUCT USED FOR UNKNOWN INDICATION
     Dosage: 1 DF, AT BEDTIME
     Route: 048
  5. CARVEDILOL. [Concomitant]
     Active Substance: CARVEDILOL
     Indication: PRODUCT USED FOR UNKNOWN INDICATION
     Dosage: 1 DF, BID
     Route: 065
     Dates: start: 20161018
  6. GLEEVEC [Suspect]
     Active Substance: IMATINIB MESYLATE
     Indication: PRODUCT USED FOR UNKNOWN INDICATION
     Dosage: 1 DF, 3/7 DAYS
     Route: 065
     Dates: start: 20161219

REACTIONS (18)
  - Amnesia [Unknown]
  - Osteopenia [Unknown]
  - Hyperglycaemia [Unknown]
  - Chronic kidney disease [Unknown]
  - Deafness [Unknown]
  - Onychomycosis [Unknown]
  - Gastritis [Unknown]
  - Vitamin D deficiency [Unknown]
  - Depression [Unknown]
  - Extrapyramidal disorder [Unknown]
  - Chronic obstructive pulmonary disease [Unknown]
  - Somnolence [Unknown]
  - Dementia Alzheimer^s type [Unknown]
  - Dyslipidaemia [Unknown]
  - Anaemia [Unknown]
  - Cataract [Unknown]
  - Essential hypertension [Unknown]
  - Neoplasm prostate [Unknown]
